FAERS Safety Report 6479883-X (Version None)
Quarter: 2009Q4

REPORT INFORMATION
  Report Type: 
  Country: None (occurrence: None)
  Receive Date: 20091208
  Receipt Date: 20091124
  Transmission Date: 20100525
  Serious: Yes (Life-Threatening)
  Sender: FDA-Public Use
  Company Number: JP-SANOFI-AVENTIS-200912554JP

PATIENT
  Age: 59 Year
  Sex: Female

DRUGS (7)
  1. SOLOSTAR [Suspect]
  2. SOLOSTAR [Suspect]
  3. APIDRA SOLOSTAR [Suspect]
     Indication: DIABETES MELLITUS
     Dosage: DOSE AS USED: INSTRUCTED UNITS
     Route: 058
     Dates: start: 20090727
  4. APIDRA SOLOSTAR [Suspect]
     Dosage: DOSE:13 UNIT(S)
     Route: 058
     Dates: start: 20090906, end: 20090906
  5. LANTUS [Suspect]
     Indication: DIABETES MELLITUS
     Dosage: DOSE AS USED: INSTRUCTED UNITS  DOSE:13 UNIT(S)
     Route: 058
     Dates: start: 20071201
  6. ATORVASTATIN [Concomitant]
     Indication: HYPERLIPIDAEMIA
     Route: 048
     Dates: start: 20050501
  7. ALL OTHER NON-THERAPEUTIC PRODUCTS [Concomitant]
     Indication: CONSTIPATION
     Route: 048
     Dates: start: 20051201

REACTIONS (2)
  - HYPOGLYCAEMIA [None]
  - WRONG DRUG ADMINISTERED [None]
